FAERS Safety Report 6860024-1 (Version None)
Quarter: 2010Q3

REPORT INFORMATION
  Report Type: 
  Country: None (occurrence: None)
  Receive Date: 20100720
  Receipt Date: 20100709
  Transmission Date: 20110219
  Serious: Yes (Hospitalization)
  Sender: FDA-Public Use
  Company Number: IT-NOVOPROD-308774

PATIENT
  Sex: Female

DRUGS (4)
  1. NOVORAPID FLEXPEN [Suspect]
     Indication: PRODUCT USED FOR UNKNOWN INDICATION
     Dosage: 8 IU, QD
  2. NOVOMIX 30 FLEXPEN [Suspect]
     Indication: PRODUCT USED FOR UNKNOWN INDICATION
     Dosage: 8 IU, QD
  3. SINEMET [Concomitant]
  4. COMBISARTAN [Concomitant]

REACTIONS (3)
  - FACE INJURY [None]
  - FALL [None]
  - HYPOGLYCAEMIA [None]
